FAERS Safety Report 7914649-2 (Version None)
Quarter: 2011Q4

REPORT INFORMATION
  Report Type: 
  Country: None (occurrence: None)
  Receive Date: 20111115
  Receipt Date: 20111108
  Transmission Date: 20120403
  Serious: Yes (Hospitalization, Other)
  Sender: FDA-Public Use
  Company Number: PHEH2011US008889

PATIENT
  Sex: Female

DRUGS (5)
  1. TEGRETOL [Concomitant]
     Indication: CONVULSION
     Route: 048
  2. LASIX [Concomitant]
  3. CARVEDILOL [Concomitant]
     Dosage: 5 MG,
     Route: 048
  4. EXJADE [Suspect]
     Indication: IRON OVERLOAD
     Dosage: 2000 MG, QD
     Route: 048
     Dates: start: 20081125
  5. CISMAPLAT [Concomitant]
     Dosage: 5 MG, QD
     Route: 048

REACTIONS (1)
  - SYNCOPE [None]
